FAERS Safety Report 9045399 (Version 1)
Quarter: 2013Q1

REPORT INFORMATION
  Report Type: Report from Study
  Country: US (occurrence: US)
  Receive Date: 20130131
  Receipt Date: 20130131
  Transmission Date: 20140127
  Serious: No
  Sender: FDA-Public Use
  Company Number: US-ABBOTT-12P-163-1003688-00

PATIENT
  Age: 70 Year
  Sex: Male

DRUGS (14)
  1. HUMIRA [Suspect]
     Indication: RHEUMATOID ARTHRITIS
     Dates: start: 20121004
  2. ADVAIR [Concomitant]
     Dosage: 250/50MCG
  3. ALBUTEROL [Concomitant]
     Indication: ASTHMA
     Dosage: 90MCG/PUFF
     Route: 055
  4. PREDNISONE [Concomitant]
     Indication: PRODUCT USED FOR UNKNOWN INDICATION
     Dosage: DECREASING HER DOSE AS IT FEELS BETTER, NOT A PHYSICIAN^S ORDER
  5. BENICAR [Concomitant]
     Indication: BLOOD PRESSURE
     Dosage: 40/25MG
  6. POTASSIUM [Concomitant]
     Indication: BLOOD POTASSIUM DECREASED
  7. SINGULAIR [Concomitant]
     Indication: PRODUCT USED FOR UNKNOWN INDICATION
  8. NEURONTIN [Concomitant]
     Indication: NERVOUS SYSTEM DISORDER
     Dosage: PILL
  9. FISH OIL [Concomitant]
     Indication: MINERAL SUPPLEMENTATION
  10. VITAMIN C [Concomitant]
     Indication: VITAMIN SUPPLEMENTATION
  11. MULTIVITAMIN SILVER [Concomitant]
     Indication: VITAMIN SUPPLEMENTATION
  12. TESTOSTERONE CYPIONATE [Concomitant]
     Indication: BONE DISORDER
     Dates: start: 20121003
  13. DUO NEBULIZER [Concomitant]
     Indication: PRODUCT USED FOR UNKNOWN INDICATION
  14. DUO NEBULIZER [Concomitant]

REACTIONS (5)
  - Respiration abnormal [Not Recovered/Not Resolved]
  - Dyspnoea [Not Recovered/Not Resolved]
  - Weight increased [Not Recovered/Not Resolved]
  - Fatigue [Not Recovered/Not Resolved]
  - Dysphonia [Not Recovered/Not Resolved]
